FAERS Safety Report 6993641-9 (Version None)
Quarter: 2010Q3

REPORT INFORMATION
  Report Type: 
  Country: None (occurrence: None)
  Receive Date: 20100917
  Receipt Date: 20100311
  Transmission Date: 20110219
  Serious: Yes (Other)
  Sender: FDA-Public Use
  Company Number: US-ASTRAZENECA-2009UW20831

PATIENT
  Age: 11101 Day
  Sex: Female
  Weight: 110.7 kg

DRUGS (7)
  1. SEROQUEL [Suspect]
     Route: 048
     Dates: start: 20031104
  2. TOPAMAX [Concomitant]
     Dates: start: 20031104
  3. EFFEXOR [Concomitant]
     Dates: start: 20031104
  4. ZYPREXA [Concomitant]
     Dosage: 2.5-100 MG AT NIGHT
     Dates: start: 20031104
  5. TRAZODONE HCL [Concomitant]
     Dosage: 50-150 MG AT NIGHT
     Dates: start: 20031104
  6. AMARYL [Concomitant]
     Dates: start: 20040113
  7. PRAVACHOL [Concomitant]
     Dates: start: 20040113

REACTIONS (3)
  - DIABETES MELLITUS [None]
  - KETOACIDOSIS [None]
  - PANCREATITIS [None]
